FAERS Safety Report 7645558-4 (Version None)
Quarter: 2011Q3

REPORT INFORMATION
  Report Type: 
  Country: None (occurrence: None)
  Receive Date: 20110729
  Receipt Date: 20110719
  Transmission Date: 20111222
  Serious: Yes (Other)
  Sender: FDA-Public Use
  Company Number: US-ROCHE-772969

PATIENT
  Sex: Male
  Weight: 62.6 kg

DRUGS (1)
  1. ACCUTANE [Suspect]
     Route: 065
     Dates: start: 19830101, end: 19860101

REACTIONS (10)
  - DEPRESSION [None]
  - COLITIS ULCERATIVE [None]
  - GASTROOESOPHAGEAL REFLUX DISEASE [None]
  - SUICIDAL IDEATION [None]
  - NEUROPATHY PERIPHERAL [None]
  - CROHN'S DISEASE [None]
  - PROCTITIS [None]
  - COOMBS POSITIVE HAEMOLYTIC ANAEMIA [None]
  - INFLAMMATORY BOWEL DISEASE [None]
  - INTESTINAL OBSTRUCTION [None]
